FAERS Safety Report 5009737-7 (Version None)
Quarter: 2006Q2

REPORT INFORMATION
  Report Type: 
  Country: None (occurrence: None)
  Receive Date: 20060522
  Receipt Date: 20060511
  Transmission Date: 20061013
  Serious: Yes (Hospitalization)
  Sender: FDA-Public Use
  Company Number: 2006063611

PATIENT
  Age: 19 Year
  Sex: Female

DRUGS (1)
  1. LOPID [Suspect]
     Indication: ILL-DEFINED DISORDER
     Dosage: ORAL
     Route: 048

REACTIONS (5)
  - INCORRECT DOSE ADMINISTERED [None]
  - POOR QUALITY DRUG ADMINISTERED [None]
  - SELF-MEDICATION [None]
  - SUICIDE ATTEMPT [None]
  - VOMITING [None]
